FAERS Safety Report 4530542-X (Version None)
Quarter: 2004Q4

REPORT INFORMATION
  Report Type: 
  Country: None (occurrence: None)
  Receive Date: 20041216
  Receipt Date: 20041128
  Transmission Date: 20050328
  Serious: Yes (Death)
  Sender: FDA-Public Use
  Company Number: EWC041241662

PATIENT
  Age: 68 Year
  Sex: Male
  Weight: 58 kg

DRUGS (2)
  1. GEMZAR [Suspect]
     Indication: LUNG NEOPLASM MALIGNANT
     Dosage: 1650 MG OTHER
     Dates: start: 20040411, end: 20040525
  2. CISPLATIN [Concomitant]

REACTIONS (1)
  - PULMONARY HAEMORRHAGE [None]
